FAERS Safety Report 5896160-6 (Version None)
Quarter: 2008Q3

REPORT INFORMATION
  Report Type: 
  Country: None (occurrence: None)
  Receive Date: 20080924
  Receipt Date: 20071016
  Transmission Date: 20090109
  Serious: Yes (Other)
  Sender: FDA-Public Use
  Company Number: US-ASTRAZENECA-2007UW02078

PATIENT
  Sex: Female

DRUGS (4)
  1. SEROQUEL [Suspect]
     Route: 048
     Dates: start: 19990101
  2. LAMICTAL [Concomitant]
     Dates: start: 20031001, end: 20051001
  3. HALDOL [Concomitant]
     Dosage: 0.5MG - 1.5 MG
     Dates: start: 19981101, end: 20020101
  4. RISPERDAL [Concomitant]
     Dates: start: 20020601

REACTIONS (7)
  - ANXIETY [None]
  - DYSPEPSIA [None]
  - MIGRAINE [None]
  - NAUSEA [None]
  - PAIN [None]
  - PANCREATITIS [None]
  - TYPE 1 DIABETES MELLITUS [None]
